FAERS Safety Report 18572741 (Version 2)
Quarter: 2021Q1

REPORT INFORMATION
  Report Type: Report from Study
  Country: IE (occurrence: IE)
  Receive Date: 20201203
  Receipt Date: 20210301
  Transmission Date: 20210419
  Serious: Yes (Hospitalization)
  Sender: FDA-Public Use
  Company Number: IE-SA-2020SA343857

PATIENT
  Age: 5 Year
  Sex: Male

DRUGS (10)
  1. EFTRENONACOG ALFA [Suspect]
     Active Substance: EFTRENONACOG ALFA
     Dosage: 1500 IU, QW
     Dates: start: 20180928, end: 20190811
  2. EFTRENONACOG ALFA [Suspect]
     Active Substance: EFTRENONACOG ALFA
     Indication: FACTOR IX DEFICIENCY
     Dosage: 2000 IU, QOW
     Dates: start: 20170601, end: 20180927
  3. EFTRENONACOG ALFA [Suspect]
     Active Substance: EFTRENONACOG ALFA
     Dosage: 1500 IU, QW
     Dates: start: 20180928, end: 20190811
  4. EFTRENONACOG ALFA [Suspect]
     Active Substance: EFTRENONACOG ALFA
     Dosage: 2000 IU, QW
     Dates: start: 20190812
  5. EFTRENONACOG ALFA [Suspect]
     Active Substance: EFTRENONACOG ALFA
     Dosage: 2000 IU, QW
     Dates: start: 20190812
  6. EFTRENONACOG ALFA [Suspect]
     Active Substance: EFTRENONACOG ALFA
     Dosage: 2 IU
     Route: 042
     Dates: start: 20190604
  7. EFTRENONACOG ALFA [Suspect]
     Active Substance: EFTRENONACOG ALFA
     Indication: FACTOR IX DEFICIENCY
     Dosage: 2000 IU, QOW
     Dates: start: 20170601, end: 20180927
  8. EFTRENONACOG ALFA [Suspect]
     Active Substance: EFTRENONACOG ALFA
     Dosage: 2 IU
     Route: 042
     Dates: start: 20190604
  9. EFTRENONACOG ALFA [Suspect]
     Active Substance: EFTRENONACOG ALFA
     Dosage: 3.75 IU
     Route: 042
     Dates: start: 20190603
  10. EFTRENONACOG ALFA [Suspect]
     Active Substance: EFTRENONACOG ALFA
     Dosage: 3.75 IU
     Route: 042
     Dates: start: 20190603

REACTIONS (2)
  - Traumatic haematoma [Recovered/Resolved]
  - Injury [Recovered/Resolved]

NARRATIVE: CASE EVENT DATE: 20190603
